FAERS Safety Report 6499009-6 (Version None)
Quarter: 2009Q4

REPORT INFORMATION
  Report Type: 
  Country: None (occurrence: None)
  Receive Date: 20091215
  Receipt Date: 20091201
  Transmission Date: 20100525
  Serious: Yes (Hospitalization)
  Sender: FDA-Public Use
  Company Number: NZ-MYLANLABS-2009S1020683

PATIENT
  Age: 20 Year
  Sex: Female

DRUGS (1)
  1. ERYTHROMYCIN LACTOBIONATE [Suspect]
     Indication: TONSILLITIS
     Dosage: SINGLE DOSE OF 800MG
     Route: 048

REACTIONS (1)
  - BILIARY COLIC [None]
